FAERS Safety Report 10717638 (Version 2)
Quarter: 2015Q1

REPORT INFORMATION
  Report Type: Spontaneous
  Country: US (occurrence: US)
  Receive Date: 20150116
  Receipt Date: 20150130
  Transmission Date: 20150721
  Serious: Yes (Death)
  Sender: FDA-Public Use
  Company Number: US-UNITED THERAPEUTICS-UNT-2015-000299

PATIENT
  Age: 62 Year
  Sex: Male
  Weight: 83.9 kg

DRUGS (2)
  1. REVATIO [Concomitant]
     Active Substance: SILDENAFIL CITRATE
     Indication: PRODUCT USED FOR UNKNOWN INDICATION
  2. TYVASO [Suspect]
     Active Substance: TREPROSTINIL
     Indication: PULMONARY HYPERTENSION
     Dosage: 54 ?G, THREE-FOUR TIMES A DAY
     Dates: start: 20120509

REACTIONS (2)
  - Respiratory failure [Fatal]
  - Septic shock [Fatal]

NARRATIVE: CASE EVENT DATE: 20150107
